FAERS Safety Report 19627671 (Version 1)
Quarter: 2021Q3

REPORT INFORMATION
  Report Type: Spontaneous
  Country: US (occurrence: US)
  Receive Date: 20210728
  Receipt Date: 20210728
  Transmission Date: 20211014
  Serious: Yes (Death, Other)
  Sender: FDA-Public Use
  Company Number: US-GILEAD-2021-0542060

PATIENT
  Sex: Female

DRUGS (3)
  1. INTERLEUKIN?6 [Concomitant]
     Active Substance: INTERLEUKIN NOS
  2. CONVALESCENT PLASMA COVID?19 [Concomitant]
     Active Substance: COVID-19 CONVALESCENT PLASMA
  3. VEKLURY [Suspect]
     Active Substance: REMDESIVIR
     Indication: COVID-19
     Route: 065

REACTIONS (2)
  - Disease progression [Fatal]
  - Maternal exposure during pregnancy [Recovered/Resolved]
